FAERS Safety Report 5633450-6 (Version None)
Quarter: 2008Q1

REPORT INFORMATION
  Report Type: 
  Country: None (occurrence: None)
  Receive Date: 20080221
  Receipt Date: 20080211
  Transmission Date: 20080703
  Serious: Yes (Hospitalization, Other)
  Sender: FDA-Public Use
  Company Number: US-PFIZER INC-2008013149

PATIENT
  Sex: Male
  Weight: 95.3 kg

DRUGS (11)
  1. LIPITOR [Suspect]
     Indication: BLOOD CHOLESTEROL
  2. DILANTIN [Concomitant]
     Dosage: DAILY DOSE:500MG-TEXT:200MG IN MORNING AND 300MG AT NIGHT
  3. DILANTIN [Concomitant]
  4. PLAVIX [Concomitant]
  5. PLAVIX [Concomitant]
  6. LISINOPRIL [Concomitant]
  7. LISINOPRIL [Concomitant]
  8. TOPROL-XL [Concomitant]
  9. TOPROL-XL [Concomitant]
  10. ASPIRIN [Concomitant]
  11. ASPIRIN [Concomitant]

REACTIONS (6)
  - ARTHRITIS [None]
  - CARDIAC OPERATION [None]
  - JOINT INJURY [None]
  - JOINT SWELLING [None]
  - MYOCARDIAL INFARCTION [None]
  - PAIN [None]
